FAERS Safety Report 5799951-5 (Version None)
Quarter: 2008Q3

REPORT INFORMATION
  Report Type: 
  Country: None (occurrence: None)
  Receive Date: 20080703
  Receipt Date: 20080627
  Transmission Date: 20090109
  Serious: Yes (Other)
  Sender: FDA-Public Use
  Company Number: US-GENENTECH-256008

PATIENT
  Sex: Female
  Weight: 56.236 kg

DRUGS (6)
  1. HUMATROPE [Suspect]
     Indication: TURNER'S SYNDROME
     Dosage: 305 MG, 6/WEEK
     Route: 058
     Dates: start: 19990514
  2. PRIMAXIN [Concomitant]
     Indication: DRUG USE FOR UNKNOWN INDICATION
     Dosage: UNK, UNK
  3. ZANTAC [Concomitant]
     Indication: DRUG USE FOR UNKNOWN INDICATION
  4. ACETAMINOPHEN [Concomitant]
     Indication: DRUG USE FOR UNKNOWN INDICATION
     Dosage: 160 MG, PRN
     Route: 048
  5. MULTI-VITAMIN [Concomitant]
     Indication: DRUG USE FOR UNKNOWN INDICATION
     Dosage: 1 TABLET, QAM
     Route: 048
  6. SUDAFED COLD + COUGH (UNITED STATES) [Concomitant]
     Indication: DRUG USE FOR UNKNOWN INDICATION
     Dosage: 30 MG, PRN
     Route: 048

REACTIONS (1)
  - OSTEOCHONDROMA [None]
